FAERS Safety Report 5977651-6 (Version None)
Quarter: 2008Q4

REPORT INFORMATION
  Report Type: 
  Country: None (occurrence: None)
  Receive Date: 20081125
  Receipt Date: 20081114
  Transmission Date: 20090506
  Serious: Yes (Hospitalization)
  Sender: FDA-Public Use
  Company Number: US025039

PATIENT
  Age: 45 Year
  Sex: Female

DRUGS (1)
  1. PROVIGIL [Suspect]
     Dosage: TOTAL DOSE 800MG ORAL
     Route: 048

REACTIONS (2)
  - CONVULSION [None]
  - INCORRECT DOSE ADMINISTERED [None]
